FAERS Safety Report 8549444-7 (Version None)
Quarter: 2012Q3

REPORT INFORMATION
  Report Type: 
  Country: None (occurrence: None)
  Receive Date: 20120730
  Receipt Date: 20100504
  Transmission Date: 20120928
  Serious: Yes (Other)
  Sender: FDA-Public Use
  Company Number: AU-ROCHE-1090784

PATIENT
  Sex: Male

DRUGS (5)
  1. XELODA [Suspect]
     Indication: COLORECTAL CANCER METASTATIC
  2. IRINOTECAN HCL [Concomitant]
  3. AVASTIN [Suspect]
     Indication: COLORECTAL CANCER METASTATIC
  4. LEUCOVORIN CALCIUM [Concomitant]
  5. FLUOROURACIL [Concomitant]

REACTIONS (4)
  - METASTASES TO BONE [None]
  - PROCTALGIA [None]
  - RECTAL ULCER [None]
  - SURGERY [None]
